FAERS Safety Report 6780259-6 (Version None)
Quarter: 2010Q2

REPORT INFORMATION
  Report Type: 
  Country: None (occurrence: None)
  Receive Date: 20100618
  Receipt Date: 20100607
  Transmission Date: 20101027
  Serious: Yes (Death, Hospitalization, Other)
  Sender: FDA-Public Use
  Company Number: US-ELI_LILLY_AND_COMPANY-US201006002192

PATIENT
  Sex: Female
  Weight: 78.685 kg

DRUGS (11)
  1. PROZAC [Suspect]
     Indication: DEPRESSION
     Dosage: 20 MG, DAILY (1/D)
  2. LIPITOR [Concomitant]
     Indication: LIPID METABOLISM DISORDER
     Dosage: 20 MG, 2/D
  3. TEKTURNA /01763601/ [Concomitant]
     Dosage: 300 MG, UNK
  4. NORVASC [Concomitant]
     Indication: HYPERTENSION
     Dosage: 10 MG, UNK
     Route: 048
  5. VERAPAMIL [Concomitant]
     Indication: HYPERTENSION
     Dosage: 240 MG, UNK
     Route: 048
  6. FUROSEMIDE [Concomitant]
     Indication: OEDEMA
     Dosage: 20 MG, UNK
     Route: 048
  7. CELEBREX [Concomitant]
     Indication: INTERVERTEBRAL DISC DEGENERATION
     Dosage: 200 MG, 2/D
     Route: 048
  8. CORTICOSTEROIDS [Concomitant]
     Route: 030
  9. ADVAIR DISKUS 100/50 [Concomitant]
     Dosage: 1 D/F, 2/D
  10. NOVOLOG [Concomitant]
     Dosage: UNK, 2/D
  11. XOPENEX [Concomitant]

REACTIONS (11)
  - AORTIC STENOSIS [None]
  - CARDIAC FAILURE [None]
  - CHRONIC OBSTRUCTIVE PULMONARY DISEASE [None]
  - DEPRESSION [None]
  - HIATUS HERNIA [None]
  - HYPERTENSION [None]
  - INTERVERTEBRAL DISC DEGENERATION [None]
  - LIPIDS ABNORMAL [None]
  - OSTEOARTHRITIS [None]
  - RESTLESS LEGS SYNDROME [None]
  - SUDDEN CARDIAC DEATH [None]
